FAERS Safety Report 23637649 (Version 1)
Quarter: 2024Q1

REPORT INFORMATION
  Report Type: Report from Study
  Country: US (occurrence: US)
  Receive Date: 20240315
  Receipt Date: 20240315
  Transmission Date: 20240410
  Serious: Yes (Hospitalization, Other)
  Sender: FDA-Public Use
  Company Number: US-Eisai-EC-2024-160001

PATIENT
  Age: 60 Year
  Sex: Male
  Weight: 99.3 kg

DRUGS (10)
  1. LENVIMA [Suspect]
     Active Substance: LENVATINIB
     Indication: Renal cancer
     Route: 048
     Dates: start: 20240124, end: 202403
  2. SERTRALINE [Concomitant]
     Active Substance: SERTRALINE HYDROCHLORIDE
     Dosage: DOSE AND FREQUENCY UNKNOWN
  3. LISINOPRIL [Concomitant]
     Active Substance: LISINOPRIL
     Dosage: DOSE AND FREQUENCY UNKNOWN
  4. IRON [Concomitant]
     Active Substance: IRON
     Dosage: DOSE AND FREQUENCY UNKNOWN
  5. ASPIRIN [Concomitant]
     Active Substance: ASPIRIN
     Dosage: DOSE AND FREQUENCY UNKNOWN
  6. PROCHLORPERAZINE [Concomitant]
     Active Substance: PROCHLORPERAZINE
     Dosage: DOSE AND FREQUENCY UNKNOWN
  7. ONDANSETRON [Concomitant]
     Active Substance: ONDANSETRON
     Dosage: DOSE AND FREQUENCY UNKNOWN
  8. KEYTRUDA [Concomitant]
     Active Substance: PEMBROLIZUMAB
     Indication: Renal cancer
     Dosage: DOSE AND FREQUENCY UNKNOWN
     Route: 042
  9. TYLENOL [Concomitant]
     Active Substance: ACETAMINOPHEN
     Dosage: DOSE AND FREQUENCY UNKNOWN
  10. OXYCODONE [Concomitant]
     Active Substance: OXYCODONE\OXYCODONE HYDROCHLORIDE
     Dosage: DOSE AND FREQUENCY UNKNOWN

REACTIONS (8)
  - Pulmonary oedema [Unknown]
  - Ejection fraction decreased [Not Recovered/Not Resolved]
  - Sinus congestion [Unknown]
  - Dyspnoea [Unknown]
  - Cough [Unknown]
  - Urinary tract obstruction [Recovered/Resolved]
  - Blood pressure increased [Unknown]
  - Nausea [Recovering/Resolving]

NARRATIVE: CASE EVENT DATE: 20240101
